FAERS Safety Report 9236088 (Version 1)
Quarter: 2013Q2

REPORT INFORMATION
  Report Type: Spontaneous
  Country: US (occurrence: US)
  Receive Date: 20130417
  Receipt Date: 20130417
  Transmission Date: 20140414
  Serious: No
  Sender: FDA-Public Use
  Company Number: US-ABBOTT-12P-163-0965110-00

PATIENT
  Sex: 0

DRUGS (9)
  1. ZEMPLAR INJECTION [Suspect]
     Indication: HYPERPARATHYROIDISM
     Route: 050
     Dates: start: 20120322, end: 20120707
  2. HEPARIN [Concomitant]
     Indication: PRODUCT USED FOR UNKNOWN INDICATION
  3. VENOFER [Concomitant]
     Indication: PRODUCT USED FOR UNKNOWN INDICATION
  4. ALLOPURINOL [Concomitant]
     Indication: GOUT
  5. COLCHICINE [Concomitant]
     Indication: GOUT
  6. ULORIC [Concomitant]
     Indication: GOUT
  7. METOPROLOL [Concomitant]
     Indication: PRODUCT USED FOR UNKNOWN INDICATION
  8. RENOVITE [Concomitant]
     Indication: PRODUCT USED FOR UNKNOWN INDICATION
  9. ARTRIDOL [Concomitant]
     Indication: PRODUCT USED FOR UNKNOWN INDICATION

REACTIONS (1)
  - Dysgeusia [Recovered/Resolved]
